FAERS Safety Report 9557948 (Version 4)
Quarter: 2013Q4

REPORT INFORMATION
  Report Type: Spontaneous
  Country: JP (occurrence: JP)
  Receive Date: 20130926
  Receipt Date: 20131024
  Transmission Date: 20140711
  Serious: Yes (Life-Threatening, Other)
  Sender: FDA-Public Use
  Company Number: JP-BAYER-2013-114010

PATIENT
  Age: 84 Year
  Sex: Male
  Weight: 47 kg

DRUGS (13)
  1. BAYASPIRIN [Suspect]
     Dosage: 100 MG, QD
     Route: 048
  2. ZYLORIC [Concomitant]
     Dosage: 100 MG, QD
     Route: 048
  3. IRBESARTAN [Concomitant]
     Dosage: 50 MG, QD
     Route: 048
  4. ZANTAC [Concomitant]
     Dosage: 150 MG, QD
     Route: 048
  5. LIPITOR [Concomitant]
     Dosage: 10 MG, QD
     Route: 048
  6. INNOLET 30R [Concomitant]
     Dosage: DAILY DOSE 14 U
     Route: 058
  7. MAGNESIUM OXIDE [Concomitant]
     Dosage: 1 DF, HS
     Route: 048
  8. MAALOX [Concomitant]
     Dosage: DAILY DOSE 3 DF
     Route: 048
     Dates: start: 20130502
  9. ULCERLMIN [Concomitant]
     Dosage: DAILY DOSE 3 DF
     Route: 048
     Dates: start: 20130502
  10. REBAMIPIDE [Concomitant]
     Dosage: DAILY DOSE 300 MG
     Route: 048
     Dates: start: 20130502
  11. NEXIUM [Concomitant]
     Indication: ULCER
     Dosage: DAILY DOSE 1 DF
     Route: 048
     Dates: start: 20130502
  12. FERRUM [Concomitant]
     Dosage: DAILY DOSE 100 MG
     Route: 048
     Dates: start: 20130502
  13. DIART [Concomitant]
     Dosage: 30 MG, QD
     Route: 048

REACTIONS (4)
  - Upper gastrointestinal haemorrhage [Recovering/Resolving]
  - Gastric cancer stage 0 [None]
  - Duodenal ulcer [None]
  - Haemorrhagic anaemia [None]
